FAERS Safety Report 7796980-7 (Version None)
Quarter: 2011Q4

REPORT INFORMATION
  Report Type: 
  Country: None (occurrence: None)
  Receive Date: 20111005
  Receipt Date: 20111005
  Transmission Date: 20120403
  Serious: No
  Sender: FDA-Public Use
  Company Number: None

PATIENT
  Age: 56 Year
  Sex: Male
  Weight: 82 kg

DRUGS (1)
  1. ACETADOTE [Suspect]
     Indication: TOXICITY TO VARIOUS AGENTS
     Dosage: 12.3 GRAMS
     Route: 041
     Dates: start: 20110928, end: 20110929

REACTIONS (4)
  - RASH MACULO-PAPULAR [None]
  - RASH ERYTHEMATOUS [None]
  - INFUSION RELATED REACTION [None]
  - LIP SWELLING [None]
